FAERS Safety Report 16536449 (Version 3)
Quarter: 2020Q1

REPORT INFORMATION
  Report Type: Spontaneous
  Country: FR (occurrence: FR)
  Receive Date: 20190706
  Receipt Date: 20200109
  Transmission Date: 20200409
  Serious: Yes (Hospitalization, Other)
  Sender: FDA-Public Use
  Company Number: FR-AUROBINDO-AUR-APL-2019-037692

PATIENT
  Age: 23 Week
  Sex: Female

DRUGS (12)
  1. KARDEGIC [Suspect]
     Active Substance: ASPIRIN DL-LYSINE
     Indication: PROPHYLAXIS
     Dosage: 1 DOSAGE FORM, ONCE A DAY
     Route: 065
     Dates: start: 20161126
  2. SPECIAFOLDINE [Suspect]
     Active Substance: FOLIC ACID
     Indication: VITAMIN SUPPLEMENTATION
     Dosage: 1 DOSAGE FORM, ONCE A DAY
     Route: 065
     Dates: start: 20161121
  3. CORTICOSTEROID NOS [Concomitant]
     Active Substance: CORTICOSTEROID NOS
     Dosage: 80 MILLIGRAM, ONCE A DAY
     Route: 065
  4. CORTICOSTEROID NOS [Concomitant]
     Active Substance: CORTICOSTEROID NOS
     Indication: PRODUCT USED FOR UNKNOWN INDICATION
     Dosage: 20 MILLIGRAM, ONCE A DAY
     Route: 065
  5. CORTANCYL [Suspect]
     Active Substance: PREDNISONE
     Dosage: 80 MILLIGRAM, ONCE A DAY
     Route: 065
     Dates: start: 20161118
  6. PANTOPRAZOLE [Suspect]
     Active Substance: PANTOPRAZOLE
     Indication: PROPHYLAXIS AGAINST GASTROINTESTINAL ULCER
     Dosage: 20 MILLIGRAM, ONCE A DAY
     Route: 065
     Dates: start: 20161121
  7. MABTHERA [Suspect]
     Active Substance: RITUXIMAB
     Indication: THROMBOTIC THROMBOCYTOPENIC PURPURA
     Dosage: 2 DOSAGE FORM, ONCE A DAY (1 TOTAL)
     Route: 065
     Dates: start: 20161207, end: 20161207
  8. CORTANCYL [Suspect]
     Active Substance: PREDNISONE
     Indication: THROMBOTIC THROMBOCYTOPENIC PURPURA
     Dosage: 20 MILLIGRAM, ONCE A DAY
     Route: 065
     Dates: start: 20170109
  9. CORTANCYL [Suspect]
     Active Substance: PREDNISONE
     Dosage: 80 MILLIGRAM, ONCE A DAY
     Route: 065
     Dates: start: 201701
  10. ORACILLINE [Suspect]
     Active Substance: PENICILLIN V
     Indication: ANTIBIOTIC PROPHYLAXIS
     Dosage: 2 DOSAGE FORM, ONCE A DAY
     Route: 065
     Dates: start: 20161220
  11. CORTICOSTEROID NOS [Concomitant]
     Active Substance: CORTICOSTEROID NOS
     Dosage: 80 MILLIGRAM, ONCE A DAY
     Route: 065
  12. ADRENALINE [Concomitant]
     Active Substance: EPINEPHRINE
     Indication: PRODUCT USED FOR UNKNOWN INDICATION
     Dosage: UNK
     Route: 065

REACTIONS (6)
  - Thrombocytopenia [Recovered/Resolved]
  - Premature delivery [Unknown]
  - Pre-eclampsia [Recovered/Resolved]
  - Intentional product use issue [Unknown]
  - Maternal exposure during pregnancy [Unknown]
  - Off label use [Unknown]

NARRATIVE: CASE EVENT DATE: 20161220
